FAERS Safety Report 5472932-7 (Version None)
Quarter: 2007Q4

REPORT INFORMATION
  Report Type: 
  Country: None (occurrence: None)
  Receive Date: 20071001
  Receipt Date: 20070925
  Transmission Date: 20080405
  Serious: Yes (Other)
  Sender: FDA-Public Use
  Company Number: B0489314A

PATIENT
  Sex: Male

DRUGS (1)
  1. ZYBAN [Suspect]
     Route: 065

REACTIONS (2)
  - AGGRESSION [None]
  - PSYCHOTIC DISORDER [None]
